FAERS Safety Report 16913666 (Version 1)
Quarter: 2019Q4

REPORT INFORMATION
  Report Type: Spontaneous
  Country: JP (occurrence: JP)
  Receive Date: 20191014
  Receipt Date: 20191014
  Transmission Date: 20200122
  Serious: Yes (Death)
  Sender: FDA-Public Use
  Company Number: JP-BIOCRYST PHARMACEUTICALS, INC.-2019BCR00220

PATIENT
  Age: 84 Year
  Sex: Male

DRUGS (1)
  1. RAPIACTA [Suspect]
     Active Substance: PERAMIVIR
     Indication: INFLUENZA
     Dosage: UNK

REACTIONS (1)
  - Infection [Fatal]

NARRATIVE: CASE EVENT DATE: 2019
